FAERS Safety Report 7677683-6 (Version None)
Quarter: 2011Q3

REPORT INFORMATION
  Report Type: 
  Country: None (occurrence: None)
  Receive Date: 20110811
  Receipt Date: 20110803
  Transmission Date: 20111222
  Serious: Yes (Hospitalization, Other)
  Sender: FDA-Public Use
  Company Number: PHHY2011US38073

PATIENT
  Sex: Female
  Weight: 34.014 kg

DRUGS (8)
  1. CLARITIN [Concomitant]
     Dosage: 10 MG, QD
     Route: 048
  2. LASIX [Concomitant]
  3. POTASSIUM [Concomitant]
  4. EXJADE [Suspect]
     Dosage: UNK
     Route: 048
     Dates: start: 20110720
  5. EXJADE [Suspect]
     Indication: MYELODYSPLASTIC SYNDROME
     Dosage: 1500 MG, QD
     Route: 048
     Dates: start: 20101222, end: 20110418
  6. LISINOPRIL [Concomitant]
     Dosage: 10 MG, UNK
  7. PROCRIT [Concomitant]
  8. ZOLPIDEM [Concomitant]
     Dosage: 6.5 MG, QD

REACTIONS (4)
  - DIARRHOEA [None]
  - BREAST CANCER [None]
  - POST PROCEDURAL INFECTION [None]
  - NAUSEA [None]
